FAERS Safety Report 6406387-2 (Version None)
Quarter: 2009Q4

REPORT INFORMATION
  Report Type: 
  Country: None (occurrence: None)
  Receive Date: 20091019
  Receipt Date: 20091012
  Transmission Date: 20100525
  Serious: Yes (Hospitalization, Other)
  Sender: FDA-Public Use
  Company Number: FR-ROXANE LABORATORIES, INC.-2009-RO-01050RO

PATIENT
  Age: 69 Year
  Sex: Female

DRUGS (5)
  1. LITHIUM CARBONATE [Suspect]
     Route: 048
  2. GLUCOSE SALINE SOLUTION [Concomitant]
     Indication: FLUID REPLACEMENT
     Route: 042
  3. GLUCOSE SALINE SOLUTION [Concomitant]
     Indication: DRUG TOXICITY
  4. SALINE [Concomitant]
     Indication: FLUID REPLACEMENT
     Route: 042
  5. SALINE [Concomitant]
     Indication: DRUG TOXICITY

REACTIONS (12)
  - AGITATION [None]
  - BUNDLE BRANCH BLOCK RIGHT [None]
  - DEHYDRATION [None]
  - DEPRESSED LEVEL OF CONSCIOUSNESS [None]
  - DRUG TOXICITY [None]
  - ELECTROCARDIOGRAM REPOLARISATION ABNORMALITY [None]
  - NEPHROGENIC DIABETES INSIPIDUS [None]
  - OEDEMA PERIPHERAL [None]
  - PNEUMOTHORAX [None]
  - POLYURIA [None]
  - RENAL FAILURE ACUTE [None]
  - SEDATION [None]
